FAERS Safety Report 18289215 (Version 1)
Quarter: 2020Q3

REPORT INFORMATION
  Report Type: Spontaneous
  Country: US (occurrence: US)
  Receive Date: 20200921
  Receipt Date: 20200921
  Transmission Date: 20201103
  Serious: No
  Sender: FDA-Public Use
  Company Number: US-PFIZER INC-2020361676

PATIENT
  Age: 64 Year
  Sex: Female
  Weight: 56.7 kg

DRUGS (1)
  1. EFFEXOR XR [Suspect]
     Active Substance: VENLAFAXINE HYDROCHLORIDE
     Indication: DEPRESSION
     Dosage: UNK

REACTIONS (3)
  - Dizziness [Unknown]
  - Withdrawal syndrome [Unknown]
  - Head discomfort [Unknown]
